FAERS Safety Report 24013923 (Version 4)
Quarter: 2024Q3

REPORT INFORMATION
  Report Type: Spontaneous
  Country: US (occurrence: US)
  Receive Date: 20240626
  Receipt Date: 20240805
  Transmission Date: 20241016
  Serious: No
  Sender: Haleon PLC
  Company Number: US-HALEON-2183816

PATIENT
  Age: 58 Year
  Sex: Male

DRUGS (1)
  1. NICORETTE ORIGINAL [Suspect]
     Active Substance: NICOTINE
     Indication: Smoking cessation therapy
     Route: 048
     Dates: start: 20240615, end: 20240616

REACTIONS (2)
  - Tooth injury [Unknown]
  - Product complaint [Unknown]

NARRATIVE: CASE EVENT DATE: 20240615
